FAERS Safety Report 8588661-7 (Version None)
Quarter: 2012Q3

REPORT INFORMATION
  Report Type: 
  Country: None (occurrence: None)
  Receive Date: 20120803
  Receipt Date: 20120803
  Transmission Date: 20120928
  Serious: Yes (Hospitalization)
  Sender: FDA-Public Use
  Company Number: None

PATIENT
  Age: 63 Year
  Sex: Male
  Weight: 101 kg

DRUGS (2)
  1. FONDAPARINUX SODIUM [Suspect]
     Indication: PULMONARY EMBOLISM
     Dosage: ML SQ
     Route: 058
     Dates: start: 20101126, end: 20120127
  2. FONDAPARINUX SODIUM [Suspect]
     Indication: DEEP VEIN THROMBOSIS
     Dosage: ML SQ
     Route: 058
     Dates: start: 20101126, end: 20120127

REACTIONS (7)
  - NECROSIS [None]
  - FOOT FRACTURE [None]
  - SURGICAL PROCEDURE REPEATED [None]
  - HAEMATOMA [None]
  - THROMBOSIS [None]
  - FALL [None]
  - DEBRIDEMENT [None]
